FAERS Safety Report 7758779-7 (Version None)
Quarter: 2011Q3

REPORT INFORMATION
  Report Type: 
  Country: None (occurrence: None)
  Receive Date: 20110825
  Receipt Date: 20110504
  Transmission Date: 20111222
  Serious: Yes (Hospitalization)
  Sender: FDA-Public Use
  Company Number: 327668

PATIENT

DRUGS (1)
  1. VICTOZA [Suspect]
     Indication: PRODUCT USED FOR UNKNOWN INDICATION
     Dosage: TWO TO THREE TIMES PER DAY, SUBCUTANEOUS
     Route: 058
     Dates: start: 20110101

REACTIONS (5)
  - BLOOD GLUCOSE INCREASED [None]
  - FOOD POISONING [None]
  - HEADACHE [None]
  - CHEST PAIN [None]
  - VOMITING [None]
